FAERS Safety Report 7689029-8 (Version None)
Quarter: 2011Q3

REPORT INFORMATION
  Report Type: 
  Country: None (occurrence: None)
  Receive Date: 20110817
  Receipt Date: 20110802
  Transmission Date: 20111222
  Serious: Yes (Other)
  Sender: FDA-Public Use
  Company Number: US-WATSON-2011-12215

PATIENT
  Sex: Female
  Weight: 90.249 kg

DRUGS (5)
  1. COREG [Concomitant]
     Indication: BLOOD PRESSURE
  2. FENTANYL [Concomitant]
     Indication: BACK PAIN
     Dosage: ONE PATCH Q 3 DAYS
     Route: 062
     Dates: start: 20110729, end: 20110804
  3. FENTANYL-25 [Suspect]
     Indication: BACK PAIN
     Dosage: ONE PATCH Q 3 DAYS
     Route: 062
     Dates: start: 20110723
  4. EXELON [Concomitant]
     Indication: DEMENTIA
     Dosage: ONE PATCH Q 24 HOURS
     Route: 062
  5. COREG [Concomitant]
     Indication: CARDIAC DISORDER
     Dosage: ONE TAB DAILY
     Route: 048
     Dates: start: 20110701

REACTIONS (4)
  - HEART RATE DECREASED [None]
  - DRUG INEFFECTIVE [None]
  - HYPOTENSION [None]
  - OXYGEN SATURATION DECREASED [None]
